FAERS Safety Report 5955568-0 (Version None)
Quarter: 2008Q4

REPORT INFORMATION
  Report Type: 
  Country: None (occurrence: None)
  Receive Date: 20081117
  Receipt Date: 20081106
  Transmission Date: 20090506
  Serious: Yes (Death)
  Sender: FDA-Public Use
  Company Number: US-PFIZER INC-2008080044

PATIENT
  Sex: Male
  Weight: 61.2 kg

DRUGS (4)
  1. LIPITOR [Suspect]
     Indication: CEREBROVASCULAR ACCIDENT
     Route: 048
  2. NORVASC [Suspect]
     Indication: BLOOD CHOLESTEROL INCREASED
     Route: 048
  3. WARFARIN SODIUM [Concomitant]
  4. LANOXIN [Concomitant]

REACTIONS (1)
  - CEREBROVASCULAR ACCIDENT [None]
